FAERS Safety Report 5405656-2 (Version None)
Quarter: 2007Q3

REPORT INFORMATION
  Report Type: 
  Country: None (occurrence: None)
  Receive Date: 20070806
  Receipt Date: 20070731
  Transmission Date: 20080115
  Serious: Yes (Death)
  Sender: FDA-Public Use
  Company Number: PHBS2007GB12876

PATIENT
  Age: 75 Year
  Sex: Female

DRUGS (3)
  1. SERTRALINE [Concomitant]
     Dosage: 50 MG, BID
     Route: 065
  2. PERICIAZINE [Concomitant]
     Dosage: 5 MG, TID
     Route: 065
  3. CARBAMAZEPINE [Suspect]
     Dosage: 200 MG, BID
     Route: 065

REACTIONS (9)
  - ACUTE RESPIRATORY DISTRESS SYNDROME [None]
  - HYPOXIA [None]
  - INTUBATION [None]
  - LUNG INJURY [None]
  - MECHANICAL VENTILATION [None]
  - MULTI-ORGAN FAILURE [None]
  - PNEUMONIA [None]
  - PULMONARY OEDEMA [None]
  - RESPIRATORY FAILURE [None]
